FAERS Safety Report 6370715-7 (Version None)
Quarter: 2009Q3

REPORT INFORMATION
  Report Type: 
  Country: None (occurrence: None)
  Receive Date: 20090923
  Receipt Date: 20070702
  Transmission Date: 20100115
  Serious: Yes (Other)
  Sender: FDA-Public Use
  Company Number: US-ASTRAZENECA-2006UW25084

PATIENT
  Sex: Female

DRUGS (2)
  1. SEROQUEL [Suspect]
     Indication: SCHIZOPHRENIA
     Dosage: 200 MG TO 400 MG
     Route: 048
     Dates: start: 20001026
  2. SEROQUEL [Suspect]
     Indication: BIPOLAR DISORDER
     Dosage: 200 MG TO 400 MG
     Route: 048
     Dates: start: 20001026

REACTIONS (1)
  - TARDIVE DYSKINESIA [None]
